FAERS Safety Report 6430716-7 (Version None)
Quarter: 2009Q4

REPORT INFORMATION
  Report Type: 
  Country: None (occurrence: None)
  Receive Date: 20091104
  Receipt Date: 20091026
  Transmission Date: 20100525
  Serious: No
  Sender: FDA-Public Use
  Company Number: 220047K09USA

PATIENT
  Age: 6 Year
  Sex: Female

DRUGS (2)
  1. SAIZEN [Suspect]
     Indication: GROWTH HORMONE DEFICIENCY
     Dosage: 0.7 MG, SUBCUTANEOUS, 0.8MG, SUBCUTANEOUS
     Route: 058
     Dates: start: 20090101, end: 20090901
  2. SAIZEN [Suspect]
     Indication: GROWTH HORMONE DEFICIENCY
     Dosage: 0.7 MG, SUBCUTANEOUS, 0.8MG, SUBCUTANEOUS
     Route: 058
     Dates: start: 20090901

REACTIONS (1)
  - GASTROENTERITIS VIRAL [None]
